FAERS Safety Report 21293565 (Version 1)
Quarter: 2022Q3

REPORT INFORMATION
  Report Type: Spontaneous
  Country: ES (occurrence: ES)
  Receive Date: 20220905
  Receipt Date: 20220905
  Transmission Date: 20221026
  Serious: Yes (Hospitalization, Other)
  Sender: FDA-Public Use
  Company Number: None

PATIENT
  Age: 66 Year
  Sex: Female

DRUGS (10)
  1. ZOLEDRONIC ACID [Suspect]
     Active Substance: ZOLEDRONIC ACID
     Indication: Osteoporosis
     Dates: start: 20220602
  2. HYDROCHLOROTHIAZIDE\IRBESARTAN [Concomitant]
     Active Substance: HYDROCHLOROTHIAZIDE\IRBESARTAN
     Indication: Essential hypertension
     Dosage: 300 MG AT BREAKFAST, STRENGTH-  300 MG/12.5 MG, 28 TABLETS
     Dates: start: 20081105
  3. BISOPROLOL [Concomitant]
     Active Substance: BISOPROLOL
     Indication: Tobacco abuse
     Dosage: 2.5 MG AT BREAKFAST, STRENGTH- 2.5 MG, 28 TABLETS
     Dates: start: 20220507
  4. OMEPRAZOLE [Concomitant]
     Active Substance: OMEPRAZOLE
     Indication: Duodenitis
     Dosage: 40.0 MG AT BREAKFAST AND DINNER, STRENGTH-40 MG,  56 CAPSULES (BOTTLE)
     Dates: start: 20190701
  5. ACETAMINOPHEN\TRAMADOL [Concomitant]
     Active Substance: ACETAMINOPHEN\TRAMADOL
     Indication: Pain
     Dosage: 1.0 TABLET AT BREAKFAST, LUNCH AND DINNER, STRENGTH- 75 MG/650 MG,  60 TABLETS (BLISTER)
     Dates: start: 20220602
  6. FOSFOMYCIN SODIUM [Concomitant]
     Active Substance: FOSFOMYCIN SODIUM
     Indication: Dysuria
     Dosage: 500 MG EVERY 8 HOURS, STRENGTH- 500 MG, 24 CAPSULES
     Dates: start: 20220611
  7. NOLOTIL [Concomitant]
     Indication: Pain
     Dosage: 575 MG EVERY 8 HOURS, STRENGTH- 575 MG, 20 CAPSULES
     Dates: start: 20220611
  8. Atorvastatin, Ezetimibe [Concomitant]
     Indication: Hyperlipidaemia
     Dosage: 1.0 TABLET EVERY 24H, STRENGTH-  10 MG/40 MG, 30 TABLETS
     Dates: start: 20170602
  9. METFORMIN\SITAGLIPTIN [Concomitant]
     Active Substance: METFORMIN\SITAGLIPTIN
     Indication: Type 2 diabetes mellitus
     Dosage: 1.0 TABLET AT BREAKFAST AND DINNER, STRENGTH- 50 MG/1000, 56 TABLETS
     Dates: start: 20211215
  10. ACETAMINOPHEN [Concomitant]
     Active Substance: ACETAMINOPHEN
     Indication: Pain
     Dosage: 1.0 G EVERY 8 HOURS, STRENGTH- 1G,  40 TABLETS
     Dates: start: 20220602

REACTIONS (1)
  - Renal tubular necrosis [Recovering/Resolving]

NARRATIVE: CASE EVENT DATE: 20220613
